FAERS Safety Report 4424883-4 (Version None)
Quarter: 2004Q3

REPORT INFORMATION
  Report Type: 
  Country: None (occurrence: None)
  Receive Date: 20040809
  Receipt Date: 20040804
  Transmission Date: 20050211
  Serious: Yes (Hospitalization)
  Sender: FDA-Public Use
  Company Number: HQWYE529820APR04

PATIENT
  Age: 46 Year
  Sex: Female

DRUGS (13)
  1. RAPAMUNE [Suspect]
     Indication: PROPHYLAXIS AGAINST TRANSPLANT REJECTION
     Dosage: 6 MG X 1 PER 1 DAY
     Route: 048
     Dates: start: 20040130
  2. CONJUGATED ESTROGENS [Suspect]
     Indication: HORMONE REPLACEMENT THERAPY
     Dosage: 0.625 MG 1X PER 1 DAY
     Route: 048
     Dates: start: 20040112, end: 20040723
  3. MEDROXYPROGESTERONE ACETATE [Suspect]
     Indication: HORMONE REPLACEMENT THERAPY
     Dosage: 5 MG 1X PER 1 DAY
     Route: 048
     Dates: start: 20040112, end: 20040723
  4. ACETAMINOPHEN [Concomitant]
  5. KETOCONAZOLE [Concomitant]
  6. NIFEDIPINE [Concomitant]
  7. ATENOLOL [Concomitant]
  8. RANITIDINE [Concomitant]
  9. MYCOPHENOLATE MOFETIL (MYCOPHENOLATE MOFETIL) [Concomitant]
  10. PREDNISONE [Concomitant]
  11. ACETAMINOPHEN W/ CODEINE [Concomitant]
  12. SIMVASTATIN [Concomitant]
  13. TRIAMCINOLONE ACETONIDE [Concomitant]

REACTIONS (3)
  - CONDITION AGGRAVATED [None]
  - THROMBOPHLEBITIS SUPERFICIAL [None]
  - VENOUS THROMBOSIS LIMB [None]
